FAERS Safety Report 14190720 (Version 1)
Quarter: 2017Q4

REPORT INFORMATION
  Report Type: Spontaneous
  Country: US (occurrence: US)
  Receive Date: 20171114
  Receipt Date: 20171114
  Transmission Date: 20180321
  Serious: Yes (Death)
  Sender: FDA-Public Use
  Company Number: None

PATIENT
  Age: 22 Year
  Sex: Male

DRUGS (3)
  1. OPIOIDS [Concomitant]
     Active Substance: UNSPECIFIED INGREDIENT
  2. XANAX [Concomitant]
     Active Substance: ALPRAZOLAM
  3. KRATOM (MITRAGYNA) [Suspect]
     Active Substance: MITRAGYNINE\HERBALS
     Indication: DRUG DEPENDENCE
     Dates: start: 20141226, end: 20161226

REACTIONS (1)
  - Overdose [None]

NARRATIVE: CASE EVENT DATE: 20161226
